FAERS Safety Report 10420023 (Version 1)
Quarter: 2014Q3

REPORT INFORMATION
  Report Type: Spontaneous
  Country: US (occurrence: US)
  Receive Date: 20140829
  Receipt Date: 20140829
  Transmission Date: 20150326
  Serious: Yes (Hospitalization)
  Sender: FDA-Public Use
  Company Number: US-PFIZER INC-2014237872

PATIENT
  Age: 18 Year
  Sex: Female

DRUGS (3)
  1. VENLAFAXINE HCL [Suspect]
     Active Substance: VENLAFAXINE HYDROCHLORIDE
     Dosage: 150 MG, (TOOK 22 CAPSULES)
     Route: 048
  2. MELATONIN [Suspect]
     Active Substance: MELATONIN
     Dosage: 25 MG, UNK
     Route: 048
  3. LAMOTRIGINE. [Suspect]
     Active Substance: LAMOTRIGINE
     Dosage: 600 MG, UNK
     Route: 048

REACTIONS (8)
  - Convulsion [Recovered/Resolved]
  - Feeling hot [Unknown]
  - Feeling jittery [Unknown]
  - Dizziness [Unknown]
  - Suicide attempt [Unknown]
  - Tachycardia [Recovered/Resolved]
  - Overdose [Unknown]
  - Nausea [Unknown]
